FAERS Safety Report 10238659 (Version 1)
Quarter: 2014Q2

REPORT INFORMATION
  Report Type: Spontaneous
  Country: US (occurrence: None)
  Receive Date: 20140613
  Receipt Date: 20140613
  Transmission Date: 20141212
  Serious: Yes (Life-Threatening, Disabling, Other)
  Sender: FDA-Public Use
  Company Number: None

PATIENT
  Age: 48 Year
  Sex: Female
  Weight: 94.35 kg

DRUGS (7)
  1. SUBOXONE [Suspect]
     Indication: DRUG ABUSE
     Dosage: 1 FILM BID SUBLINGUAL
     Route: 060
  2. ALBUTEROL PRN [Concomitant]
  3. DUONEB PRN [Concomitant]
  4. ASPIRIN [Concomitant]
  5. PAROXETINE [Concomitant]
  6. RAMIPRIL [Concomitant]
  7. SPIRONOLACTONE [Concomitant]

REACTIONS (5)
  - Oedema peripheral [None]
  - Gait disturbance [None]
  - Syncope [None]
  - Asthenia [None]
  - No therapeutic response [None]
